FAERS Safety Report 25183507 (Version 1)
Quarter: 2025Q2

REPORT INFORMATION
  Report Type: Report from Study
  Country: US (occurrence: US)
  Receive Date: 20250410
  Receipt Date: 20250410
  Transmission Date: 20250716
  Serious: Yes (Other)
  Sender: ALEXION PHARMACEUTICALS
  Company Number: US-AstraZeneca-CH-00842609A

PATIENT

DRUGS (2)
  1. OLAPARIB [Suspect]
     Active Substance: OLAPARIB
     Indication: Ovarian cancer
     Dosage: 250 MILLIGRAM, BID
  2. ITRACONAZOLE [Concomitant]
     Active Substance: ITRACONAZOLE
     Route: 065

REACTIONS (1)
  - Pneumonia fungal [Unknown]
